FAERS Safety Report 22131397 (Version 2)
Quarter: 2023Q2

REPORT INFORMATION
  Report Type: Spontaneous
  Country: JP (occurrence: JP)
  Receive Date: 20230323
  Receipt Date: 20230426
  Transmission Date: 20230721
  Serious: Yes (Other)
  Sender: FDA-Public Use
  Company Number: JP-BEH-2023156819

PATIENT
  Age: 58 Year
  Sex: Male
  Weight: 91 kg

DRUGS (5)
  1. HUMAN IMMUNOGLOBULIN G [Suspect]
     Active Substance: HUMAN IMMUNOGLOBULIN G
     Indication: Bickerstaff^s encephalitis
     Dosage: 400 MILLIGRAM/KILOGRAM
     Route: 042
  2. HUMAN IMMUNOGLOBULIN G [Suspect]
     Active Substance: HUMAN IMMUNOGLOBULIN G
     Dosage: 26 DAYS AFTER THE INITIAL IVIG
     Route: 042
  3. ACYCLOVIR SODIUM [Concomitant]
     Active Substance: ACYCLOVIR SODIUM
  4. METHYLPREDNISOLONE [Concomitant]
     Active Substance: METHYLPREDNISOLONE
     Dosage: 1000 MILLIGRAM, QD
  5. EDOXABAN [Concomitant]
     Active Substance: EDOXABAN
     Route: 048

REACTIONS (7)
  - Thrombocytopenia [Unknown]
  - Hypercoagulation [Recovered/Resolved]
  - Disseminated intravascular coagulation [Unknown]
  - Fibrin D dimer increased [Unknown]
  - Fibrin degradation products increased [Unknown]
  - No adverse event [Unknown]
  - Off label use [Unknown]
